FAERS Safety Report 21422313 (Version 1)
Quarter: 2022Q4

REPORT INFORMATION
  Report Type: Spontaneous
  Country: US (occurrence: US)
  Receive Date: 20221007
  Receipt Date: 20221007
  Transmission Date: 20230113
  Serious: No
  Sender: FDA-Public Use
  Company Number: US-LUPIN PHARMACEUTICALS INC.-2022-11719

PATIENT
  Age: 8 Year
  Sex: Male

DRUGS (21)
  1. FENOFIBRATE [Suspect]
     Active Substance: FENOFIBRATE
     Indication: Neoplasm
     Dosage: UNK UNK, QD (METRONOMIC CHEMOTHERAPY)
     Route: 065
  2. CELECOXIB [Suspect]
     Active Substance: CELECOXIB
     Indication: Neoplasm
     Dosage: UNK UNK, QD (METRONOMIC CHEMOTHERAPY)
     Route: 065
  3. THALIDOMIDE [Suspect]
     Active Substance: THALIDOMIDE
     Indication: Neoplasm
     Dosage: UNK, METRONOMIC CHEMOTHERAPY
     Route: 065
  4. ETOPOSIDE [Suspect]
     Active Substance: ETOPOSIDE
     Indication: Neoplasm
     Dosage: UNK, ICE REGIMEN; ONE CYCLE
     Route: 065
  5. ETOPOSIDE [Suspect]
     Active Substance: ETOPOSIDE
     Dosage: UNK, INDUCTION THERAPY
     Route: 065
  6. ETOPOSIDE [Suspect]
     Active Substance: ETOPOSIDE
     Dosage: UNK, CONSOLIDATION THERAPY
     Route: 065
  7. ETOPOSIDE [Suspect]
     Active Substance: ETOPOSIDE
     Dosage: UNK, METRONOMIC CHEMOTHERAPY
     Route: 065
  8. CYCLOPHOSPHAMIDE [Suspect]
     Active Substance: CYCLOPHOSPHAMIDE
     Indication: Neoplasm
     Dosage: UNK, INDUCTION THERAPY
     Route: 065
  9. CYCLOPHOSPHAMIDE [Suspect]
     Active Substance: CYCLOPHOSPHAMIDE
     Dosage: UNK, METRONOMIC CHEMOTHERAPY
     Route: 065
  10. IFOSFAMIDE [Concomitant]
     Active Substance: IFOSFAMIDE
     Indication: Neoplasm
     Dosage: UNK, ICE REGIMEN; ONE CYCLE
     Route: 065
  11. CARBOPLATIN [Concomitant]
     Active Substance: CARBOPLATIN
     Indication: Neoplasm
     Dosage: UNK, ICE REGIMEN; ONE CYCLE
     Route: 065
  12. CARBOPLATIN [Concomitant]
     Active Substance: CARBOPLATIN
     Dosage: UNK, CONSOLIDATION THERAPY
     Route: 065
  13. VINCRISTINE [Concomitant]
     Active Substance: VINCRISTINE
     Indication: Neoplasm
     Dosage: UNK, INDUCTION THERAPY
     Route: 065
  14. CISPLATIN [Concomitant]
     Active Substance: CISPLATIN
     Indication: Neoplasm
     Dosage: UNK, INDUCTION THERAPY
     Route: 065
  15. MANNITOL [Concomitant]
     Active Substance: MANNITOL
     Indication: Neoplasm
     Dosage: UNK, INDUCTION THERAPY
     Route: 065
  16. MESNA [Concomitant]
     Active Substance: MESNA
     Indication: Neoplasm
     Dosage: UNK, INDUCTION THERAPY
     Route: 065
  17. METHOTREXATE [Concomitant]
     Active Substance: METHOTREXATE
     Indication: Neoplasm
     Dosage: UNK, HIGH-DOSE; INDUCTION THERAPY
     Route: 065
  18. LEUCOVORIN [Concomitant]
     Active Substance: LEUCOVORIN
     Indication: Neoplasm
     Dosage: UNK, INDUCTION THERAPY
     Route: 065
  19. THIOTEPA [Concomitant]
     Active Substance: THIOTEPA
     Indication: Neoplasm
     Dosage: UNK, CONSOLIDATION THERAPY
     Route: 065
  20. PROMETHAZINE [Interacting]
     Active Substance: PROMETHAZINE HYDROCHLORIDE
     Indication: Product used for unknown indication
     Dosage: UNK
     Route: 065
  21. HYDROXYZINE [Interacting]
     Active Substance: HYDROXYZINE HYDROCHLORIDE
     Indication: Product used for unknown indication
     Dosage: UNK
     Route: 065

REACTIONS (1)
  - Off label use [Unknown]
